FAERS Safety Report 17905351 (Version 1)
Quarter: 2020Q2

REPORT INFORMATION
  Report Type: Spontaneous
  Country: US (occurrence: US)
  Receive Date: 20200616
  Receipt Date: 20200616
  Transmission Date: 20200714
  Serious: Yes (Hospitalization)
  Sender: FDA-Public Use
  Company Number: None

PATIENT
  Age: 17 Year
  Sex: Male

DRUGS (2)
  1. TOBRAMYCIN 300MG/5ML 20ML [Suspect]
     Active Substance: TOBRAMYCIN
     Indication: ACUTE RESPIRATORY FAILURE
     Route: 055
     Dates: start: 20190626
  2. PULMOZYME [Suspect]
     Active Substance: DORNASE ALFA
     Indication: ACUTE RESPIRATORY FAILURE
     Route: 055

REACTIONS (1)
  - Pneumonia [None]

NARRATIVE: CASE EVENT DATE: 20200517
